FAERS Safety Report 4845842-3 (Version None)
Quarter: 2005Q4

REPORT INFORMATION
  Report Type: 
  Country: None (occurrence: None)
  Receive Date: 20051206
  Receipt Date: 20051108
  Transmission Date: 20060501
  Serious: Yes (Death)
  Sender: FDA-Public Use
  Company Number: ES-GLAXOSMITHKLINE-B0399967A

PATIENT
  Age: 77 Year
  Sex: Female

DRUGS (2)
  1. ARIXTRA [Suspect]
     Route: 065
     Dates: start: 20051020
  2. ROSIGLITAZONE [Concomitant]
     Indication: DRUG USE FOR UNKNOWN INDICATION
     Route: 065

REACTIONS (3)
  - HYPERGLYCAEMIA [None]
  - PULMONARY EMBOLISM [None]
  - RENAL FAILURE [None]
